FAERS Safety Report 8862876 (Version 1)
Quarter: 2012Q4

REPORT INFORMATION
  Report Type: 
  Country: FR (occurrence: FR)
  Receive Date: 20121026
  Receipt Date: 20121026
  Transmission Date: 20130627
  Serious: Yes (Hospitalization, Other)
  Sender: FDA-Public Use
  Company Number: FR-PFIZER INC-2012261459

PATIENT
  Age: 61 Year
  Sex: Male

DRUGS (3)
  1. TORISEL [Suspect]
     Dosage: 175 mg, weekly
     Route: 042
     Dates: start: 20120705
  2. TORISEL [Suspect]
     Dosage: 175 mg, weekly
     Dates: start: 20120712
  3. TORISEL [Suspect]
     Dosage: 175 mg, weekly
     Dates: start: 20120720

REACTIONS (3)
  - Interstitial lung disease [Recovering/Resolving]
  - Pleural effusion [Unknown]
  - Sarcoidosis [Unknown]
